FAERS Safety Report 6804238-5 (Version None)
Quarter: 2010Q2

REPORT INFORMATION
  Report Type: 
  Country: None (occurrence: None)
  Receive Date: 20100628
  Receipt Date: 20070131
  Transmission Date: 20101027
  Serious: Yes (Other)
  Sender: FDA-Public Use
  Company Number: US-PFIZER INC-2007009026

PATIENT
  Sex: Male
  Weight: 47.6 kg

DRUGS (1)
  1. RELPAX [Suspect]
     Indication: MIGRAINE
     Dates: start: 20060301

REACTIONS (2)
  - DRUG INEFFECTIVE [None]
  - ILL-DEFINED DISORDER [None]
